FAERS Safety Report 8371053-3 (Version None)
Quarter: 2012Q2

REPORT INFORMATION
  Report Type: 
  Country: None (occurrence: None)
  Receive Date: 20120518
  Receipt Date: 20120510
  Transmission Date: 20120825
  Serious: Yes (Hospitalization)
  Sender: FDA-Public Use
  Company Number: CH-BRISTOL-MYERS SQUIBB COMPANY-16582520

PATIENT
  Age: 28 Year
  Sex: Male

DRUGS (4)
  1. ABILIFY [Suspect]
     Indication: SCHIZOAFFECTIVE DISORDER
     Route: 048
     Dates: start: 20110101, end: 20110824
  2. LITHIUM CARBONATE [Suspect]
     Route: 048
     Dates: start: 20030101
  3. SEROQUEL [Suspect]
  4. ESCITALOPRAM [Suspect]
     Route: 048
     Dates: start: 20110101, end: 20110824

REACTIONS (1)
  - SEROTONIN SYNDROME [None]
